FAERS Safety Report 13359473 (Version 2)
Quarter: 2017Q1

REPORT INFORMATION
  Report Type: Spontaneous
  Country: CA (occurrence: CA)
  Receive Date: 20170322
  Receipt Date: 20170329
  Transmission Date: 20170429
  Serious: Yes (Other)
  Sender: FDA-Public Use
  Company Number: PHHY2017CA042851

PATIENT
  Sex: Male

DRUGS (1)
  1. CICLOSPORIN [Suspect]
     Active Substance: CYCLOSPORINE
     Indication: PRODUCT USED FOR UNKNOWN INDICATION
     Route: 065

REACTIONS (13)
  - Memory impairment [Unknown]
  - Mental impairment [Unknown]
  - Drug ineffective [Unknown]
  - Skin irritation [Unknown]
  - Disturbance in attention [Unknown]
  - Skin plaque [Unknown]
  - Burning sensation [Unknown]
  - Fatigue [Unknown]
  - Nausea [Unknown]
  - Skin exfoliation [Unknown]
  - Psoriatic arthropathy [Unknown]
  - Pruritus [Unknown]
  - Indifference [Unknown]
